FAERS Safety Report 5520357-8 (Version None)
Quarter: 2007Q4

REPORT INFORMATION
  Report Type: 
  Country: None (occurrence: None)
  Receive Date: 20071119
  Receipt Date: 20071109
  Transmission Date: 20080405
  Serious: Yes (Hospitalization, Other)
  Sender: FDA-Public Use
  Company Number: PHFR2007GB02964

PATIENT
  Age: 39 Year
  Sex: Male

DRUGS (2)
  1. CLOZARIL [Suspect]
     Indication: SCHIZOPHRENIA
     Dosage: 350 MG/DAY
     Route: 048
     Dates: start: 20070828, end: 20071001
  2. VALPROATE SODIUM [Concomitant]
     Indication: SCHIZOPHRENIA
     Dosage: 1500 MG/DAY
     Route: 048
     Dates: start: 20070822

REACTIONS (7)
  - CARDIOMEGALY [None]
  - CHEST PAIN [None]
  - CIRCULATORY COLLAPSE [None]
  - ELECTROCARDIOGRAM T WAVE AMPLITUDE DECREASED [None]
  - MYOCARDITIS [None]
  - PERICARDIAL EFFUSION [None]
  - TACHYCARDIA [None]
